FAERS Safety Report 7324178-5 (Version None)
Quarter: 2011Q1

REPORT INFORMATION
  Report Type: 
  Country: None (occurrence: None)
  Receive Date: 20110301
  Receipt Date: 20110218
  Transmission Date: 20110831
  Serious: Yes (Other)
  Sender: FDA-Public Use
  Company Number: JP-JNJFOC-20101106383

PATIENT
  Sex: Female
  Weight: 42 kg

DRUGS (8)
  1. REMICADE [Suspect]
     Route: 042
  2. MARZULENE [Concomitant]
     Dosage: DOSE: 0.5 DF
     Route: 048
  3. REMICADE [Suspect]
     Indication: RHEUMATOID ARTHRITIS
     Route: 042
  4. REMICADE [Suspect]
     Route: 042
  5. FOLIAMIN [Concomitant]
     Route: 048
  6. METHOTREXATE [Concomitant]
     Indication: RHEUMATOID ARTHRITIS
     Route: 048
  7. REMICADE [Suspect]
     Route: 042
  8. BONALON [Concomitant]
     Route: 048

REACTIONS (1)
  - DISSEMINATED TUBERCULOSIS [None]
